FAERS Safety Report 10208198 (Version 1)
Quarter: 2014Q2

REPORT INFORMATION
  Report Type: Spontaneous
  Country: US (occurrence: US)
  Receive Date: 20140530
  Receipt Date: 20140530
  Transmission Date: 20141212
  Serious: No
  Sender: FDA-Public Use
  Company Number: US-PURDUE-USA-2013-0108098

PATIENT
  Sex: Male

DRUGS (2)
  1. MORPHINE SULFATE (SIMILAR TO NDA 19-516) [Suspect]
     Indication: PRODUCT USED FOR UNKNOWN INDICATION
     Dosage: 60 MG, AM
  2. MORPHINE SULFATE (SIMILAR TO NDA 19-516) [Suspect]
     Dosage: 120 MG, PM

REACTIONS (3)
  - Inappropriate schedule of drug administration [Unknown]
  - Lethargy [Unknown]
  - Fatigue [Unknown]
